FAERS Safety Report 4673825-5 (Version None)
Quarter: 2005Q2

REPORT INFORMATION
  Report Type: 
  Country: None (occurrence: None)
  Receive Date: 20050524
  Receipt Date: 20050510
  Transmission Date: 20051028
  Serious: Yes (Other)
  Sender: FDA-Public Use
  Company Number: FR_050506385

PATIENT
  Age: 58 Year
  Sex: Female

DRUGS (2)
  1. GEMZAR [Suspect]
     Indication: BREAST CANCER
     Dates: start: 20050401
  2. CARBOPLATIN [Concomitant]

REACTIONS (1)
  - THROMBOCYTHAEMIA [None]
